FAERS Safety Report 21161257 (Version 1)
Quarter: 2022Q3

REPORT INFORMATION
  Report Type: Spontaneous
  Country: US (occurrence: None)
  Receive Date: 20220801
  Receipt Date: 20220801
  Transmission Date: 20221026
  Serious: Yes (Death)
  Sender: FDA-Public Use
  Company Number: None

PATIENT
  Age: 76 Year
  Sex: Male

DRUGS (13)
  1. NOURIANZ [Suspect]
     Active Substance: ISTRADEFYLLINE
     Indication: Parkinson^s disease
     Dosage: FREQUENCY : DAILY;?
     Route: 048
     Dates: start: 20220707, end: 20220729
  2. QUETIAPINE [Concomitant]
     Active Substance: QUETIAPINE
  3. BREO ELLIPTA [Concomitant]
     Active Substance: FLUTICASONE FUROATE\VILANTEROL TRIFENATATE
  4. carbidopa-levodopa 25-100mg [Concomitant]
  5. docusate 200mg [Concomitant]
  6. LAMOTRIGINE [Concomitant]
     Active Substance: LAMOTRIGINE
  7. melatonin 10mg [Concomitant]
  8. MIRTAZAPINE [Concomitant]
     Active Substance: MIRTAZAPINE
  9. SIMVASTATIN [Concomitant]
     Active Substance: SIMVASTATIN
  10. Vitamin D 2000unit [Concomitant]
  11. Calcium 600mg [Concomitant]
  12. fish oil 1000mg [Concomitant]
  13. fluticasone 50mcg nasal spray [Concomitant]

REACTIONS (1)
  - Cerebrovascular accident [None]

NARRATIVE: CASE EVENT DATE: 20220718
